FAERS Safety Report 4340646-2 (Version None)
Quarter: 2004Q2

REPORT INFORMATION
  Report Type: 
  Country: None (occurrence: None)
  Receive Date: 20040413
  Receipt Date: 20040401
  Transmission Date: 20050107
  Serious: Yes (Hospitalization)
  Sender: FDA-Public Use
  Company Number: US-JNJFOC-20040400431

PATIENT
  Age: 60 Year
  Sex: Male
  Weight: 67.586 kg

DRUGS (6)
  1. INFLIXIMAB (INFLIXIMAB, RECOMBINANT) LYOPHILIZED POWDER [Suspect]
     Indication: CROHN'S DISEASE
  2. MESALAZINE (MESALAZINE) [Concomitant]
  3. ANTIBIOTICS [Concomitant]
  4. BUDESONIDE [Concomitant]
  5. NARCOTIC ANALGESICS (ANALGESICS) [Concomitant]
  6. ANTIDEPRESSANTS [Concomitant]

REACTIONS (3)
  - APPENDICEAL ABSCESS [None]
  - APPENDICITIS PERFORATED [None]
  - PERITONITIS [None]
